FAERS Safety Report 26049221 (Version 2)
Quarter: 2025Q4

REPORT INFORMATION
  Report Type: Spontaneous
  Country: EU (occurrence: EU)
  Receive Date: 20251115
  Receipt Date: 20251202
  Transmission Date: 20260117
  Serious: Yes (Hospitalization, Other)
  Sender: AUROBINDO
  Company Number: EU-SANDOZ-SDZ2025ES082490

PATIENT
  Age: 75 Year
  Sex: Male
  Weight: 79.3 kg

DRUGS (12)
  1. CARBOPLATIN [Suspect]
     Active Substance: CARBOPLATIN
     Indication: Non-small cell lung cancer
     Dosage: 434.98 MG, Q3W
     Dates: start: 20250415, end: 20250415
  2. CARBOPLATIN [Suspect]
     Active Substance: CARBOPLATIN
     Dosage: 434.98 MG, Q3W
     Dates: start: 20250527, end: 20250527
  3. CARBOPLATIN [Suspect]
     Active Substance: CARBOPLATIN
     Dosage: 473.01 MG, Q3W
     Dates: start: 20250625, end: 20250625
  4. PEMETREXED [Suspect]
     Active Substance: PEMETREXED
     Indication: Non-small cell lung cancer
     Dosage: 1005 MG, Q3W
     Dates: start: 20250415, end: 20250415
  5. PEMETREXED [Suspect]
     Active Substance: PEMETREXED
     Dosage: 1005 MG, Q3W
     Dates: start: 20250527, end: 20250527
  6. PEMETREXED [Suspect]
     Active Substance: PEMETREXED
     Dosage: 950 MG, Q3W
     Dates: start: 20250625, end: 20250625
  7. PEMETREXED [Suspect]
     Active Substance: PEMETREXED
     Dosage: 950 MG, Q3W
     Dates: start: 20250716, end: 20250716
  8. PEMETREXED [Suspect]
     Active Substance: PEMETREXED
     Dosage: 950 MG, Q3W
     Dates: start: 20250805, end: 20250805
  9. PEMETREXED [Suspect]
     Active Substance: PEMETREXED
     Dosage: 712.5 MG, Q3W
     Dates: start: 20250902, end: 20250902
  10. PEMETREXED [Suspect]
     Active Substance: PEMETREXED
     Dosage: 712.5 MG, Q3W
     Dates: start: 20250930, end: 20250930
  11. PEMETREXED [Suspect]
     Active Substance: PEMETREXED
     Dosage: 712.5 MG, Q3W
     Dates: start: 20251021, end: 20251021
  12. PEMETREXED [Suspect]
     Active Substance: PEMETREXED
     Dosage: 712.5 MG, Q3W

REACTIONS (1)
  - Pneumonitis [Recovered/Resolved]

NARRATIVE: CASE EVENT DATE: 20250918
